FAERS Safety Report 7070542-1 (Version None)
Quarter: 2010Q4

REPORT INFORMATION
  Report Type: 
  Country: None (occurrence: None)
  Receive Date: 20101027
  Receipt Date: 20101027
  Transmission Date: 20110411
  Serious: Yes (Other)
  Sender: FDA-Public Use
  Company Number: None

PATIENT

DRUGS (2)
  1. AMITIZA [Suspect]
     Indication: CONSTIPATION
     Dosage: 1 CAPSULE TWICE A DAY
     Dates: start: 20101001, end: 20101025
  2. AMITIZA [Suspect]
     Indication: IRRITABLE BOWEL SYNDROME
     Dosage: 1 CAPSULE TWICE A DAY
     Dates: start: 20101001, end: 20101025

REACTIONS (2)
  - PHARYNGEAL OEDEMA [None]
  - THROAT TIGHTNESS [None]
